FAERS Safety Report 5959104-4 (Version None)
Quarter: 2008Q4

REPORT INFORMATION
  Report Type: 
  Country: None (occurrence: None)
  Receive Date: 20081120
  Receipt Date: 20071205
  Transmission Date: 20090506
  Serious: No
  Sender: FDA-Public Use
  Company Number: A0697523A

PATIENT
  Sex: Female

DRUGS (1)
  1. WELLBUTRIN SR [Suspect]
     Route: 048

REACTIONS (1)
  - DRUG INEFFECTIVE [None]
